FAERS Safety Report 17501112 (Version 1)
Quarter: 2020Q1

REPORT INFORMATION
  Report Type: Spontaneous
  Country: AU (occurrence: AU)
  Receive Date: 20200305
  Receipt Date: 20200305
  Transmission Date: 20200409
  Serious: Yes (Other)
  Sender: FDA-Public Use
  Company Number: AU-FRESENIUS KABI-FK202002201

PATIENT
  Age: 73 Year
  Sex: Male

DRUGS (4)
  1. ROPIVACAINE (MANUFACTURER UNKNOWN) [Suspect]
     Active Substance: ROPIVACAINE
     Indication: LOCAL ANAESTHESIA
     Dosage: 3 ML MIXTURE OF LIGNOCAINE, AND HYALURONIDASE
     Route: 050
  2. LIDOCAINE (MANUFACTURER UNKNOWN) [Suspect]
     Active Substance: LIDOCAINE
     Indication: LOCAL ANAESTHESIA
     Dosage: 3 ML MIXTURE OF ROPIVACAINE, AND HYALURONIDASE
     Route: 050
  3. HYALURONIDASE [Suspect]
     Active Substance: HYALURONIDASE
     Indication: LOCAL ANAESTHESIA
     Dosage: 30 U/ML IN 3 ML MIXTURE OF LIGNOCAINE, AND ROPIVACAINE
     Route: 050
  4. ALFENTANIL. [Concomitant]
     Active Substance: ALFENTANIL
     Indication: SEDATIVE THERAPY
     Route: 065

REACTIONS (3)
  - Maculopathy [Unknown]
  - Hypertension [Not Recovered/Not Resolved]
  - Retinal artery occlusion [Unknown]
